FAERS Safety Report 20112291 (Version 8)
Quarter: 2022Q3

REPORT INFORMATION
  Report Type: Report from Study
  Country: CN (occurrence: None)
  Receive Date: 20211125
  Receipt Date: 20220714
  Transmission Date: 20221027
  Serious: Yes (Death)
  Sender: FDA-Public Use
  Company Number: CN-ROCHE-2962796

PATIENT
  Age: 79 Year
  Sex: Male
  Weight: 36.8 kg

DRUGS (39)
  1. RITUXIMAB [Suspect]
     Active Substance: RITUXIMAB
     Indication: Diffuse large B-cell lymphoma
     Dosage: THE START DATE OF MOST RECENT DOSE OF RITUXIMAB (487.5 MG) PRIOR TO AE AND SAE (SERIOUS ADVERSE EVEN
     Route: 042
     Dates: start: 20210809
  2. CYCLOPHOSPHAMIDE [Suspect]
     Active Substance: CYCLOPHOSPHAMIDE
     Indication: Diffuse large B-cell lymphoma
     Dosage: THE START DATE OF MOST RECENT DOSE OF CYCLOPHOSPHAMIDE (975 MG) PRIOR TO AE AND SAE (SERIOUS ADVERSE
     Route: 042
     Dates: start: 20210810
  3. DOXORUBICIN [Suspect]
     Active Substance: DOXORUBICIN
     Indication: Diffuse large B-cell lymphoma
     Dosage: THE START DATE OF MOST RECENT DOSE OF DOXORUBICIN (65 MG) PRIOR TO AE AND SAE (SERIOUS ADVERSE EVENT
     Route: 042
     Dates: start: 20210810
  4. VINCRISTINE [Suspect]
     Active Substance: VINCRISTINE
     Indication: Diffuse large B-cell lymphoma
     Dosage: THE START DATE OF MOST RECENT DOSE OF VINCRISTINE (1.82 MG) PRIOR TO AE AND SAE (SERIOUS ADVERSE EVE
     Route: 042
     Dates: start: 20210809
  5. PREDNISONE [Suspect]
     Active Substance: PREDNISONE
     Indication: Diffuse large B-cell lymphoma
     Dosage: THE START DATE OF MOST RECENT DOSE OF VINCRISTINE (1.82 MG) PRIOR TO AE AND SAE (SERIOUS ADVERSE EVE
     Route: 048
     Dates: start: 20210809
  6. PROPAFENONE HYDROCHLORIDE [Concomitant]
     Active Substance: PROPAFENONE HYDROCHLORIDE
     Route: 048
     Dates: start: 20210810, end: 202111
  7. TRIMETAZIDINE DIHYDROCHLORIDE [Concomitant]
     Active Substance: TRIMETAZIDINE DIHYDROCHLORIDE
     Route: 048
     Dates: start: 20210810, end: 202111
  8. COMPOUND CHLORHEXIDINE GARGLE [Concomitant]
     Route: 062
     Dates: start: 20210810, end: 202111
  9. POVIDONE-IODINE [Concomitant]
     Active Substance: POVIDONE-IODINE
     Route: 065
     Dates: start: 20210810, end: 202111
  10. CALCIUM CARBONATE\CHOLECALCIFEROL [Concomitant]
     Active Substance: CALCIUM CARBONATE\CHOLECALCIFEROL
     Route: 048
     Dates: start: 20210831, end: 202111
  11. ACETAMINOPHEN [Concomitant]
     Active Substance: ACETAMINOPHEN
     Route: 048
     Dates: start: 20211105, end: 20211105
  12. DIPHENHYDRAMINE HYDROCHLORIDE [Concomitant]
     Active Substance: DIPHENHYDRAMINE HYDROCHLORIDE
     Route: 048
     Dates: start: 20211105, end: 20211105
  13. RAMOSETRON HYDROCHLORIDE [Concomitant]
     Active Substance: RAMOSETRON HYDROCHLORIDE
     Route: 042
     Dates: start: 20211105, end: 20211105
  14. MESNA [Concomitant]
     Active Substance: MESNA
     Route: 042
     Dates: start: 20211105, end: 20211105
  15. DEXRAZOXANE [Concomitant]
     Active Substance: DEXRAZOXANE
     Route: 042
     Dates: start: 20211105, end: 20211105
  16. DEXTROSE [Concomitant]
     Active Substance: DEXTROSE
     Route: 042
     Dates: start: 20211106, end: 20211106
  17. INSULIN NOS [Concomitant]
     Active Substance: INSULIN NOS
     Route: 042
     Dates: start: 20211106, end: 20211106
  18. LANSOPRAZOLE [Concomitant]
     Active Substance: LANSOPRAZOLE
     Route: 042
     Dates: start: 20211106, end: 20211106
  19. POTASSIUM CITRATE [Concomitant]
     Active Substance: POTASSIUM CITRATE
     Route: 048
     Dates: start: 20211106, end: 20211106
  20. HYDROTALCITE [Concomitant]
     Active Substance: HYDROTALCITE
     Route: 048
     Dates: start: 20211106, end: 20211106
  21. SODIUM BICARBONATE [Concomitant]
     Active Substance: SODIUM BICARBONATE
     Route: 042
     Dates: start: 20211106, end: 20211106
  22. AMBROXOL HYDROCHLORIDE [Concomitant]
     Active Substance: AMBROXOL HYDROCHLORIDE
     Dates: start: 20211113, end: 20211116
  23. RECOMBINANT HUMAN GRANULOCYTE COLONY STIMULATING FACTOR (UNK INGREDIEN [Concomitant]
     Route: 058
     Dates: start: 20211113, end: 20211117
  24. VITAMIN C [Concomitant]
     Active Substance: ASCORBIC ACID
     Route: 042
     Dates: start: 20211113, end: 20211119
  25. CEFOPERAZONE SODIUM\SULBACTAM SODIUM [Concomitant]
     Active Substance: CEFOPERAZONE SODIUM\SULBACTAM SODIUM
     Route: 042
     Dates: start: 20211113, end: 20211119
  26. CEFOPERAZONE SODIUM\SULBACTAM SODIUM [Concomitant]
     Active Substance: CEFOPERAZONE SODIUM\SULBACTAM SODIUM
     Route: 062
     Dates: start: 20211113, end: 20211113
  27. MONTMORILLONITE [Concomitant]
     Active Substance: MONTMORILLONITE
     Route: 048
     Dates: start: 20211114, end: 20211119
  28. RECOMBINANT HUMAN GRANULOCYTE COLONY STIMULATING FACTOR (UNK INGREDIEN [Concomitant]
  29. OPRELVEKIN [Concomitant]
     Active Substance: OPRELVEKIN
  30. ASARUM [Concomitant]
  31. DIAZEPAM [Concomitant]
     Active Substance: DIAZEPAM
     Route: 048
  32. INOSINE [Concomitant]
     Active Substance: INOSINE
  33. VITAMIN C [Concomitant]
     Active Substance: ASCORBIC ACID
  34. AMBROXOL HYDROCHLORIDE [Concomitant]
     Active Substance: AMBROXOL HYDROCHLORIDE
  35. VITAMIN B6 [Concomitant]
     Active Substance: PYRIDOXINE HYDROCHLORIDE
  36. PENICILLIN G SODIUM [Concomitant]
     Active Substance: PENICILLIN G SODIUM
  37. DEXAMETHASONE SODIUM PHOSPHATE [Concomitant]
     Active Substance: DEXAMETHASONE SODIUM PHOSPHATE
  38. POTASSIUM CHLORIDE [Concomitant]
     Active Substance: POTASSIUM CHLORIDE
  39. POTASSIUM SODIUM DEHYDROANDROANDROGRAPHOLIDE SUCCINATE [Concomitant]

REACTIONS (2)
  - Cardiac arrest [Fatal]
  - Multiple organ dysfunction syndrome [Fatal]

NARRATIVE: CASE EVENT DATE: 20211119
